FAERS Safety Report 5493348-3 (Version None)
Quarter: 2007Q4

REPORT INFORMATION
  Report Type: 
  Country: None (occurrence: None)
  Receive Date: 20071023
  Receipt Date: 20071015
  Transmission Date: 20080405
  Serious: Yes (Hospitalization, Disabling, Other)
  Sender: FDA-Public Use
  Company Number: US-ROCHE-349554

PATIENT
  Age: 18 Year
  Sex: Female

DRUGS (6)
  1. ACCUTANE [Suspect]
     Route: 048
     Dates: start: 19921118, end: 19921201
  2. ACCUTANE [Suspect]
     Route: 048
     Dates: start: 19921201, end: 19930519
  3. ACCUTANE [Suspect]
     Route: 048
     Dates: start: 19980617, end: 19990501
  4. ADVIL LIQUI-GELS [Concomitant]
     Route: 048
  5. DESOGEN [Concomitant]
  6. ALEVE [Concomitant]

REACTIONS (19)
  - ALANINE AMINOTRANSFERASE INCREASED [None]
  - ARTHRALGIA [None]
  - ASPARTATE AMINOTRANSFERASE INCREASED [None]
  - BACK PAIN [None]
  - BLOOD CHOLESTEROL INCREASED [None]
  - BLOOD TRIGLYCERIDES INCREASED [None]
  - COLITIS ULCERATIVE [None]
  - CROHN'S DISEASE [None]
  - DEPRESSION [None]
  - DERMATITIS [None]
  - DISTURBANCE IN ATTENTION [None]
  - DRY SKIN [None]
  - INFLAMMATORY BOWEL DISEASE [None]
  - INGUINAL HERNIA [None]
  - IRRITABLE BOWEL SYNDROME [None]
  - LIPOMA [None]
  - MENSTRUATION IRREGULAR [None]
  - MUSCULOSKELETAL DISCOMFORT [None]
  - OTITIS EXTERNA [None]
